FAERS Safety Report 7770974-X (Version None)
Quarter: 2011Q3

REPORT INFORMATION
  Report Type: 
  Country: None (occurrence: None)
  Receive Date: 20110922
  Receipt Date: 20110616
  Transmission Date: 20111222
  Serious: No
  Sender: FDA-Public Use
  Company Number: US-ASTRAZENECA-2011SE36787

PATIENT
  Sex: Female

DRUGS (4)
  1. SEROQUEL [Suspect]
     Indication: BIPOLAR DISORDER
     Route: 048
     Dates: start: 19990301
  2. SEROQUEL [Suspect]
     Dosage: 200 MG TABLETS BROKEN IN TWO
     Route: 048
  3. METFORMIN [Concomitant]
     Indication: DIABETES MELLITUS
  4. PRAVASTATIN [Concomitant]
     Indication: BLOOD CHOLESTEROL

REACTIONS (6)
  - WRONG TECHNIQUE IN DRUG USAGE PROCESS [None]
  - WRONG DRUG ADMINISTERED [None]
  - GLUCOSE TOLERANCE IMPAIRED [None]
  - DRUG DOSE OMISSION [None]
  - INSOMNIA [None]
  - WEIGHT INCREASED [None]
